FAERS Safety Report 5956684-X (Version None)
Quarter: 2008Q4

REPORT INFORMATION
  Report Type: 
  Country: None (occurrence: None)
  Receive Date: 20081118
  Receipt Date: 20081111
  Transmission Date: 20090506
  Serious: Yes (Hospitalization)
  Sender: FDA-Public Use
  Company Number: CN-BAYER-200815008GPV

PATIENT
  Age: 63 Year
  Sex: Male
  Weight: 84 kg

DRUGS (9)
  1. SORAFENIB [Suspect]
     Indication: NON-SMALL CELL LUNG CANCER
     Route: 048
     Dates: start: 20080104, end: 20080222
  2. CISPLATIN [Suspect]
     Indication: NON-SMALL CELL LUNG CANCER
     Route: 042
     Dates: start: 20080104, end: 20080215
  3. GEMCITABINE HCL [Suspect]
     Indication: NON-SMALL CELL LUNG CANCER
     Route: 042
     Dates: start: 20080104, end: 20080222
  4. RED BLOOD CELLS [Concomitant]
     Indication: SUPPLEMENTATION THERAPY
     Route: 042
     Dates: start: 20080315, end: 20080315
  5. PLASMA [Concomitant]
     Indication: SUPPLEMENTATION THERAPY
     Route: 042
     Dates: start: 20080315, end: 20080315
  6. PIPERACILLIN SODIUM AND TAZOBACTAM SODIUM [Concomitant]
     Indication: ANTI-INFECTIVE THERAPY
     Route: 042
     Dates: start: 20080315, end: 20080319
  7. METRONIDAZOLE DISODIUM PHOSPHATE [Concomitant]
     Indication: ANTI-INFECTIVE THERAPY
     Route: 042
     Dates: start: 20080315, end: 20080319
  8. ETIMICIN [Concomitant]
     Indication: ANTI-INFECTIVE THERAPY
     Route: 042
     Dates: start: 20080319, end: 20080409
  9. AMBROXOL HYDROCHLORIDE [Concomitant]
     Indication: INCREASED UPPER AIRWAY SECRETION
     Route: 042
     Dates: start: 20080319, end: 20080409

REACTIONS (1)
  - LUNG ABSCESS [None]
